FAERS Safety Report 12418238 (Version 3)
Quarter: 2016Q3

REPORT INFORMATION
  Report Type: Spontaneous
  Country: ES (occurrence: ES)
  Receive Date: 20160531
  Receipt Date: 20160728
  Transmission Date: 20161109
  Serious: Yes (Other)
  Sender: FDA-Public Use
  Company Number: ES-AMGEN-ESPSP2016064522

PATIENT
  Age: 77 Year
  Sex: Female

DRUGS (5)
  1. HIDROFEROL [Concomitant]
     Active Substance: CALCIFEDIOL
     Dosage: UNK
  2. CALCIUM [Concomitant]
     Active Substance: CALCIUM
     Dosage: UNK
  3. DISGREN [Concomitant]
     Dosage: UNK
  4. ANGIODROX [Concomitant]
     Indication: ANGINA PECTORIS
     Dosage: UNK
  5. PROLIA [Suspect]
     Active Substance: DENOSUMAB
     Indication: OSTEOPOROSIS
     Dosage: UNK
     Route: 065

REACTIONS (20)
  - Oral disorder [Recovered/Resolved]
  - Muscle disorder [Unknown]
  - Glossitis [Unknown]
  - Burning sensation [Recovered/Resolved]
  - Myalgia [Recovered/Resolved]
  - Primary sequestrum [Recovered/Resolved]
  - Tooth extraction [Recovering/Resolving]
  - Insomnia [Unknown]
  - Feeling hot [Unknown]
  - Tracheal inflammation [Unknown]
  - Pain in jaw [Recovered/Resolved]
  - Blood potassium decreased [Unknown]
  - Alopecia [Unknown]
  - Muscle spasms [Unknown]
  - Asthma [Recovered/Resolved]
  - Throat irritation [Recovered/Resolved]
  - Exostosis of jaw [Recovered/Resolved]
  - Gingival disorder [Recovered/Resolved]
  - Stomatitis [Recovered/Resolved]
  - Vision blurred [Recovered/Resolved]

NARRATIVE: CASE EVENT DATE: 201603
